FAERS Safety Report 22264542 (Version 1)
Quarter: 2023Q2

REPORT INFORMATION
  Report Type: Spontaneous
  Country: PT (occurrence: PT)
  Receive Date: 20230428
  Receipt Date: 20230428
  Transmission Date: 20230722
  Serious: Yes (Hospitalization, Other)
  Sender: FDA-Public Use
  Company Number: PT-MLMSERVICE-20230413-4218976-1

PATIENT
  Age: 51 Year
  Sex: Female

DRUGS (14)
  1. VANCOMYCIN [Suspect]
     Active Substance: VANCOMYCIN
     Indication: Staphylococcal bacteraemia
     Dosage: UNKNOWN
     Route: 065
  2. CEFTAZIDIME [Suspect]
     Active Substance: CEFTAZIDIME
     Indication: Evidence based treatment
     Dosage: UNKNOWN
     Route: 065
  3. PIPERACILLIN AND TAZOBACTAM [Suspect]
     Active Substance: PIPERACILLIN SODIUM\TAZOBACTAM SODIUM
     Indication: Clostridium colitis
     Dosage: UNKNOWN
     Route: 065
  4. PIPERACILLIN AND TAZOBACTAM [Suspect]
     Active Substance: PIPERACILLIN SODIUM\TAZOBACTAM SODIUM
     Indication: Clostridial infection
  5. PIPERACILLIN AND TAZOBACTAM [Suspect]
     Active Substance: PIPERACILLIN SODIUM\TAZOBACTAM SODIUM
     Indication: Sepsis
  6. PIPERACILLIN AND TAZOBACTAM [Suspect]
     Active Substance: PIPERACILLIN SODIUM\TAZOBACTAM SODIUM
     Indication: Bacteraemia
  7. METRONIDAZOLE [Suspect]
     Active Substance: METRONIDAZOLE
     Indication: Clostridium colitis
     Dosage: UNKNOWN
     Route: 065
  8. METRONIDAZOLE [Suspect]
     Active Substance: METRONIDAZOLE
     Indication: Sepsis
  9. METRONIDAZOLE [Suspect]
     Active Substance: METRONIDAZOLE
     Indication: Clostridial infection
  10. METRONIDAZOLE [Suspect]
     Active Substance: METRONIDAZOLE
     Indication: Bacteraemia
  11. AVIBACTAM [Suspect]
     Active Substance: AVIBACTAM
     Indication: Evidence based treatment
     Dosage: UNKNOWN
     Route: 065
  12. FOSFOMYCIN [Suspect]
     Active Substance: FOSFOMYCIN
     Indication: Pneumonia klebsiella
     Route: 065
  13. FOSFOMYCIN [Suspect]
     Active Substance: FOSFOMYCIN
     Indication: Urinary tract infection bacterial
  14. DAPTOMYCIN [Suspect]
     Active Substance: DAPTOMYCIN
     Indication: Evidence based treatment
     Dosage: UNKNOWN
     Route: 065

REACTIONS (2)
  - Catheter site related reaction [Recovering/Resolving]
  - Bacterial infection [Recovering/Resolving]
